FAERS Safety Report 8258757-8 (Version None)
Quarter: 2012Q2

REPORT INFORMATION
  Report Type: 
  Country: None (occurrence: None)
  Receive Date: 20120404
  Receipt Date: 20120404
  Transmission Date: 20120825
  Serious: Yes (Other)
  Sender: FDA-Public Use
  Company Number: None

PATIENT
  Age: 54 Year
  Sex: Male
  Weight: 54.431 kg

DRUGS (1)
  1. INCIVEK [Suspect]
     Indication: HEPATITIS C
     Dosage: TWO 375 MG TABLETS
     Route: 048
     Dates: start: 20120130, end: 20120402

REACTIONS (4)
  - ANAL FISSURE [None]
  - ANORECTAL DISCOMFORT [None]
  - ANAL HAEMORRHAGE [None]
  - PROCTALGIA [None]
